FAERS Safety Report 17476952 (Version 1)
Quarter: 2020Q1

REPORT INFORMATION
  Report Type: Report from Study
  Country: US (occurrence: US)
  Receive Date: 20200228
  Receipt Date: 20200228
  Transmission Date: 20200409
  Serious: Yes (Other)
  Sender: FDA-Public Use
  Company Number: US-JNJFOC-20190931146

PATIENT
  Sex: Male

DRUGS (1)
  1. STELARA [Suspect]
     Active Substance: USTEKINUMAB
     Indication: CROHN^S DISEASE
     Dosage: HE TOOK HIS 3RD DOSE OF STELARA 90 MG SQ INJECTION FOR CROHN^S DISEASE ON 12-SEP19.
     Route: 058

REACTIONS (5)
  - Anorectal disorder [Unknown]
  - Fistula [Unknown]
  - Frequent bowel movements [Unknown]
  - Infection [Unknown]
  - Surgery [Unknown]

NARRATIVE: CASE EVENT DATE: 2019
